FAERS Safety Report 9356180 (Version 1)
Quarter: 2013Q2

REPORT INFORMATION
  Report Type: Spontaneous
  Country: JP (occurrence: JP)
  Receive Date: 20130619
  Receipt Date: 20130619
  Transmission Date: 20140414
  Serious: Yes (Life-Threatening, Hospitalization)
  Sender: FDA-Public Use
  Company Number: JP-GLAXOSMITHKLINE-B0873859A

PATIENT
  Age: 76 Year
  Sex: Female

DRUGS (12)
  1. LAMICTAL [Suspect]
     Indication: BIPOLAR DISORDER
     Dosage: 25MG ALTERNATE DAYS
     Route: 048
     Dates: start: 20130124, end: 20130206
  2. LAMICTAL [Suspect]
     Indication: BIPOLAR DISORDER
     Dosage: 25MG PER DAY
     Route: 048
     Dates: start: 20130207, end: 20130224
  3. SODIUM VALPROATE [Suspect]
     Indication: PRODUCT USED FOR UNKNOWN INDICATION
     Route: 048
  4. MUCOSTA [Concomitant]
     Indication: GASTRITIS
     Dosage: 100MG TWICE PER DAY
     Route: 048
     Dates: start: 20121218
  5. BROMOCRIPTINE MESYLATE [Concomitant]
     Indication: PARKINSONISM
     Dosage: 2.5MG TWICE PER DAY
     Route: 048
     Dates: start: 20121218
  6. ROZEREM [Concomitant]
     Indication: INSOMNIA
     Dosage: 8MG PER DAY
     Route: 048
     Dates: start: 20121218
  7. ALENDRONATE [Concomitant]
     Indication: OSTEOPOROSIS
     Route: 048
     Dates: start: 20121218
  8. EPIRENAT [Concomitant]
     Dosage: 4ML PER DAY
     Route: 048
     Dates: start: 20121226
  9. LUNESTA [Concomitant]
     Indication: INSOMNIA
     Dosage: 1MG PER DAY
     Route: 048
     Dates: start: 20130112
  10. CALFINA [Concomitant]
     Indication: OSTEOPOROSIS
     Dosage: .25MCG TWICE PER DAY
     Route: 048
     Dates: start: 20121218
  11. CELECOX [Concomitant]
     Indication: BACK PAIN
     Dosage: 100MG TWICE PER DAY
     Route: 048
     Dates: start: 20121218
  12. MAGNESIUM OXIDE [Concomitant]
     Indication: CONSTIPATION
     Dosage: .35G TWICE PER DAY
     Route: 048
     Dates: start: 20121218

REACTIONS (15)
  - Drug eruption [Recovering/Resolving]
  - Laryngeal oedema [Recovered/Resolved]
  - Dyspnoea [Recovered/Resolved]
  - Liver disorder [Recovering/Resolving]
  - Papule [Unknown]
  - Pallor [Unknown]
  - Pruritus [Unknown]
  - Pruritus [Unknown]
  - Feeling hot [Unknown]
  - Rash [Unknown]
  - Erythema [Unknown]
  - Oropharyngeal pain [Unknown]
  - Swelling face [Unknown]
  - Oedema mouth [Unknown]
  - Rash generalised [Unknown]
